FAERS Safety Report 8559213-X (Version None)
Quarter: 2012Q3

REPORT INFORMATION
  Report Type: 
  Country: None (occurrence: None)
  Receive Date: 20120720
  Receipt Date: 20120709
  Transmission Date: 20120928
  Serious: Yes (Other)
  Sender: FDA-Public Use
  Company Number: 2012P1048745

PATIENT
  Age: 33 Year
  Sex: Male

DRUGS (4)
  1. AMOXICILLIN-CLAVULANIC ACID (NO PREF. NAME) [Suspect]
     Indication: UPPER RESPIRATORY TRACT INFECTION
     Dosage: PO
     Route: 048
  2. MORPHINE [Suspect]
     Indication: PAIN
     Dosage: 2 MG;X1;IV
     Route: 042
  3. CEFAZOLIN [Suspect]
     Indication: UPPER RESPIRATORY TRACT INFECTION
     Dosage: ;IV
     Route: 042
  4. METHIMAZOLE [Concomitant]

REACTIONS (4)
  - CHEST DISCOMFORT [None]
  - RASH ERYTHEMATOUS [None]
  - HYPERTENSION [None]
  - TROPONIN I INCREASED [None]
